FAERS Safety Report 7725869-4 (Version None)
Quarter: 2011Q3

REPORT INFORMATION
  Report Type: 
  Country: None (occurrence: None)
  Receive Date: 20110902
  Receipt Date: 20110825
  Transmission Date: 20111222
  Serious: Yes (Hospitalization, Other)
  Sender: FDA-Public Use
  Company Number: US-AMGEN-USASP2011043610

PATIENT
  Age: 44 Year
  Sex: Female

DRUGS (1)
  1. ENBREL [Suspect]
     Indication: PSORIASIS
     Dosage: 50 MG, QWK
     Dates: start: 20030101, end: 20110716

REACTIONS (10)
  - LYMPHADENOPATHY [None]
  - HAEMOGLOBIN INCREASED [None]
  - GALLBLADDER DISORDER [None]
  - INTESTINAL POLYP HAEMORRHAGE [None]
  - HAEMATOCHEZIA [None]
  - COLONIC POLYP [None]
  - PRECANCEROUS MUCOSAL LESION [None]
  - GALLBLADDER POLYP [None]
  - POLYCYTHAEMIA [None]
  - HAEMATOCRIT INCREASED [None]
